FAERS Safety Report 6493528-4 (Version None)
Quarter: 2009Q4

REPORT INFORMATION
  Report Type: 
  Country: None (occurrence: None)
  Receive Date: 20091211
  Receipt Date: 20091211
  Transmission Date: 20100525
  Serious: Yes (Life-Threatening)
  Sender: FDA-Public Use
  Company Number: None

PATIENT
  Sex: Male
  Weight: 75.6 kg

DRUGS (1)
  1. PROMETHAZINE HCL [Suspect]
     Indication: ANTIEMETIC SUPPORTIVE CARE
     Dosage: 12.5 MG IV  (ONE DOSE GIVEN ON 12/03)
     Route: 042

REACTIONS (4)
  - BLOOD PRESSURE DIASTOLIC DECREASED [None]
  - DISORIENTATION [None]
  - DYSKINESIA [None]
  - HYPERTHERMIA MALIGNANT [None]
